FAERS Safety Report 25468989 (Version 6)
Quarter: 2025Q3

REPORT INFORMATION
  Report Type: Report from Study
  Country: BR (occurrence: BR)
  Receive Date: 20250623
  Receipt Date: 20250730
  Transmission Date: 20251020
  Serious: Yes (Hospitalization, Other)
  Sender: NOVARTIS
  Company Number: BR-002147023-NVSC2025BR074394

PATIENT
  Age: 40 Year
  Sex: Female

DRUGS (8)
  1. KISQALI [Suspect]
     Active Substance: RIBOCICLIB SUCCINATE
     Indication: Breast cancer metastatic
     Route: 065
  2. KISQALI [Suspect]
     Active Substance: RIBOCICLIB SUCCINATE
     Dosage: 3 DOSAGE FORM, QD (FOR 21 DAYS AND 7 DAYS REST)
     Route: 065
  3. LETROZOLE [Suspect]
     Active Substance: LETROZOLE
     Indication: Breast cancer metastatic
     Dosage: UNK UNK, QD, ABOUT 6 MONTHS BEFORE THE MEDICATION
     Route: 065
  4. LOSARTAN [Concomitant]
     Active Substance: LOSARTAN
     Indication: Product used for unknown indication
     Dosage: 50 MG, BID
     Route: 065
  5. METFORMIN [Concomitant]
     Active Substance: METFORMIN HYDROCHLORIDE
     Indication: Product used for unknown indication
     Dosage: 850 MG, BID
     Route: 065
  6. FUROSEMIDE [Concomitant]
     Active Substance: FUROSEMIDE
     Indication: Product used for unknown indication
     Dosage: 40 MG, QD
     Route: 065
  7. GLICLAZIDE [Concomitant]
     Active Substance: GLICLAZIDE
     Indication: Product used for unknown indication
     Dosage: 30 MG, BID
     Route: 065
  8. ESOMEPRAZOLE [Concomitant]
     Active Substance: ESOMEPRAZOLE
     Indication: Product used for unknown indication
     Dosage: 1 DOSAGE FORM, QD
     Route: 065

REACTIONS (20)
  - Increased upper airway secretion [Recovering/Resolving]
  - Influenza [Recovered/Resolved]
  - Pulmonary oedema [Recovered/Resolved]
  - Pneumonia [Recovered/Resolved]
  - Lung neoplasm malignant [Unknown]
  - Malignant neoplasm progression [Unknown]
  - Choking [Recovered/Resolved]
  - Ill-defined disorder [Recovered/Resolved]
  - Anxiety [Recovered/Resolved]
  - Depression [Unknown]
  - Crying [Recovered/Resolved]
  - Decreased immune responsiveness [Recovered/Resolved]
  - Tracheal disorder [Unknown]
  - Sensation of foreign body [Recovered/Resolved]
  - Thyroid disorder [Recovered/Resolved]
  - Nasopharyngitis [Unknown]
  - Pleural effusion [Unknown]
  - Atelectasis [Unknown]
  - Nodule [Unknown]
  - Granuloma [Unknown]

NARRATIVE: CASE EVENT DATE: 20250603
